FAERS Safety Report 7317692 (Version 4)
Quarter: 2013Q1

REPORT INFORMATION
  Report Type: Spontaneous
  Country: US (occurrence: US)
  Receive Date: 20100312
  Receipt Date: 20130314
  Transmission Date: 20140127
  Serious: Yes (Hospitalization)
  Sender: FDA-Public Use
  Company Number: US-BAYER-201016099NA

PATIENT
  Age: 18 Year
  Sex: Female
  Weight: 52.15 kg

DRUGS (4)
  1. YAZ [Suspect]
     Indication: CONTRACEPTION
     Dosage: QD
     Dates: start: 200701, end: 200706
  2. BISACODYL [Concomitant]
  3. GLYCOLAX [Concomitant]
  4. VESICARE [SOLIFENACIN SUCCINATE] [Concomitant]

REACTIONS (1)
  - Cerebrovascular accident [None]
